FAERS Safety Report 9402942 (Version 3)
Quarter: 2015Q1

REPORT INFORMATION
  Report Type: Report from Study
  Country: CH (occurrence: CH)
  Receive Date: 20130716
  Receipt Date: 20150206
  Transmission Date: 20150721
  Serious: Yes (Life-Threatening, Hospitalization, Other)
  Sender: FDA-Public Use
  Company Number: CH-TEVA-414862USA

PATIENT
  Age: 63 Year
  Sex: Male
  Weight: 96.7 kg

DRUGS (13)
  1. BACTRIM [Concomitant]
     Active Substance: SULFAMETHOXAZOLE\TRIMETHOPRIM
     Indication: ANTIBIOTIC PROPHYLAXIS
     Route: 048
     Dates: start: 20121217
  2. ELOCON [Concomitant]
     Active Substance: MOMETASONE FUROATE
     Indication: RASH
     Route: 061
     Dates: start: 20130304, end: 20130616
  3. BENDAMUSTINE [Suspect]
     Active Substance: BENDAMUSTINE
     Route: 042
     Dates: end: 20130617
  4. DEXAMETHASONE. [Suspect]
     Active Substance: DEXAMETHASONE
     Indication: PRODUCT USED FOR UNKNOWN INDICATION
     Route: 048
     Dates: start: 20130604, end: 20130611
  5. DEXAMETHASONE. [Suspect]
     Active Substance: DEXAMETHASONE
     Route: 048
     Dates: end: 20130617
  6. BENDAMUSTINE [Suspect]
     Active Substance: BENDAMUSTINE
     Indication: PRODUCT USED FOR UNKNOWN INDICATION
     Route: 042
     Dates: start: 20121203, end: 20130507
  7. CLEXANE [Concomitant]
     Active Substance: ENOXAPARIN SODIUM
     Indication: PROPHYLAXIS
     Dosage: 40 MILLIGRAM DAILY;
     Route: 058
     Dates: start: 20130618
  8. ENOXAPARIN SODIUM. [Concomitant]
     Active Substance: ENOXAPARIN SODIUM
  9. REVLIMID [Suspect]
     Active Substance: LENALIDOMIDE
     Indication: PRODUCT USED FOR UNKNOWN INDICATION
     Dosage: 25 MILLIGRAM DAILY; UID/QD
     Route: 048
     Dates: start: 20130604, end: 20130615
  10. REVLIMID [Suspect]
     Active Substance: LENALIDOMIDE
     Route: 048
     Dates: end: 20130617
  11. MOMETASONE FUROAT [Concomitant]
  12. SULFAMETHOXAZOLE/TRIMETHOPRIM [Concomitant]
     Active Substance: SULFAMETHOXAZOLE\TRIMETHOPRIM
  13. ASPIRIN CODEINE [Concomitant]
     Indication: PLATELET AGGREGATION INHIBITION
     Dosage: 100 MILLIGRAM DAILY;
     Route: 048
     Dates: start: 20130617

REACTIONS (1)
  - Cerebral infarction [Recovered/Resolved with Sequelae]

NARRATIVE: CASE EVENT DATE: 20130616
